FAERS Safety Report 4705374-X (Version None)
Quarter: 2005Q3

REPORT INFORMATION
  Report Type: 
  Country: None (occurrence: None)
  Receive Date: 20050701
  Receipt Date: 20050627
  Transmission Date: 20060218
  Serious: Yes (Hospitalization)
  Sender: FDA-Public Use
  Company Number: PHEH2005US07304

PATIENT
  Age: 31 Year
  Sex: Male

DRUGS (3)
  1. STARLIX [Suspect]
     Route: 048
  2. ZOCOR [Concomitant]
  3. ^TZD^ [Concomitant]

REACTIONS (1)
  - KIDNEY INFECTION [None]
